FAERS Safety Report 9098997 (Version 1)
Quarter: 2013Q1

REPORT INFORMATION
  Report Type: Spontaneous
  Country: FR (occurrence: FR)
  Receive Date: 20130214
  Receipt Date: 20130214
  Transmission Date: 20140127
  Serious: Yes (Death)
  Sender: FDA-Public Use
  Company Number: PHHY2013FR014043

PATIENT
  Age: 94 Year
  Sex: Female

DRUGS (4)
  1. AMOXICILLIN\CLAVULANATE POTASSIUM [Suspect]
     Dosage: UNK
     Dates: start: 20090518, end: 20090528
  2. ACUPAN [Suspect]
     Route: 048
     Dates: start: 20090518, end: 20090526
  3. LAMALINE [Suspect]
     Route: 048
     Dates: start: 20090522, end: 20090526
  4. LASILIX [Suspect]
     Dates: start: 20090522

REACTIONS (4)
  - Faecal vomiting [Fatal]
  - Constipation [None]
  - Pneumonia aspiration [None]
  - Sepsis [None]
